FAERS Safety Report 9093660 (Version 1)
Quarter: 2013Q1

REPORT INFORMATION
  Report Type: Spontaneous
  Country: GB (occurrence: GB)
  Receive Date: 20130219
  Receipt Date: 20130219
  Transmission Date: 20140127
  Serious: Yes (Hospitalization)
  Sender: FDA-Public Use
  Company Number: GB-SANOFI-AVENTIS-2013SA014185

PATIENT
  Age: 47 Year
  Sex: Female

DRUGS (4)
  1. LANTUS [Suspect]
     Indication: TYPE 1 DIABETES MELLITUS
     Dosage: DOSE:12 UNIT(S)
     Route: 065
  2. NOVORAPID [Suspect]
     Indication: TYPE 1 DIABETES MELLITUS
     Dosage: DOSAGE 7-7-9
     Route: 065
  3. NOVORAPID [Suspect]
     Indication: TYPE 1 DIABETES MELLITUS
     Dosage: ADMINISTERED 4 UNITS, HOUR LATER ADMINISTERED 2 UNITS, AT 7:30 PM ADMINISTERED 4 UNITS
     Route: 065
     Dates: start: 20130212, end: 20130212
  4. ANTIBIOTICS [Suspect]
     Indication: SINUSITIS
     Route: 065

REACTIONS (2)
  - Urine ketone body present [Recovering/Resolving]
  - Diarrhoea [Recovering/Resolving]
